FAERS Safety Report 8842126 (Version 1)
Quarter: 2012Q4

REPORT INFORMATION
  Report Type: 
  Country: US (occurrence: US)
  Receive Date: 20121016
  Receipt Date: 20121016
  Transmission Date: 20130627
  Serious: Yes (Death, Hospitalization)
  Sender: FDA-Public Use
  Company Number: PHHO2011US03967

PATIENT
  Age: 56 None
  Sex: Female
  Weight: 78 kg

DRUGS (19)
  1. AFINITOR [Suspect]
     Indication: BREAST CANCER METASTATIC
     Dosage: 10 mg, QD
     Route: 048
     Dates: start: 20101018, end: 20110227
  2. BEVACIZUMAB [Concomitant]
     Indication: BREAST CANCER METASTATIC
     Dosage: 10 mg/kg, UNK
     Route: 042
     Dates: start: 20101018
  3. PACLITAXEL [Concomitant]
     Indication: BREAST CANCER METASTATIC
     Dosage: 80 mg/m2, UNK
     Route: 042
     Dates: start: 20101018
  4. TOPROL XL [Concomitant]
  5. SYNTHROID [Concomitant]
  6. OMEGA 3 [Concomitant]
  7. GLUCOSAMINE [Concomitant]
  8. CHONDROITIN A [Concomitant]
  9. CALTRATE WITH VITAMIN D [Concomitant]
  10. VITAMIN D3 [Concomitant]
  11. VITAMIN C [Concomitant]
  12. MULTIVITAMIN ^LAPPE^ [Concomitant]
  13. VITAMIN B12 [Concomitant]
  14. VITAMIN B6 [Concomitant]
  15. IBUPROFEN [Concomitant]
  16. HIBICLENS [Concomitant]
  17. BIOTENE [Concomitant]
  18. PREDNISONE [Concomitant]
  19. METOPROLOL [Concomitant]
     Indication: ARRHYTHMIA

REACTIONS (5)
  - Hypoxia [Recovered/Resolved with Sequelae]
  - Pleuritic pain [Recovered/Resolved with Sequelae]
  - Pulmonary embolism [Not Recovered/Not Resolved]
  - Malignant neoplasm progression [Fatal]
  - Neoplasm progression [Fatal]
